FAERS Safety Report 19134425 (Version 4)
Quarter: 2022Q1

REPORT INFORMATION
  Report Type: Report from Study
  Country: AR (occurrence: AR)
  Receive Date: 20210414
  Receipt Date: 20220125
  Transmission Date: 20220423
  Serious: Yes (Hospitalization, Other)
  Sender: FDA-Public Use
  Company Number: AR-002147023-NVSC2021AR064205

PATIENT

DRUGS (5)
  1. RUXOLITINIB [Suspect]
     Active Substance: RUXOLITINIB
     Indication: Myelofibrosis
     Dosage: 30 MG, DAILY
     Route: 048
     Dates: start: 20201215
  2. RUXOLITINIB [Suspect]
     Active Substance: RUXOLITINIB
     Dosage: 40 MG, BID
     Route: 048
     Dates: start: 20201215
  3. RUXOLITINIB [Suspect]
     Active Substance: RUXOLITINIB
     Dosage: 40 MG, DAILY (2X20 MG)
     Route: 048
  4. ERYTHROPOIETIN [Concomitant]
     Active Substance: ERYTHROPOIETIN
     Indication: Product used for unknown indication
     Dosage: 20 THOUSAND UNITS, QW
     Route: 065
     Dates: start: 20210406
  5. ERYTHROPOIETIN [Concomitant]
     Active Substance: ERYTHROPOIETIN
     Dosage: 30 THOUSAND UNITS, QW
     Route: 065

REACTIONS (15)
  - Anaemia [Recovering/Resolving]
  - Sepsis [Unknown]
  - Clumsiness [Unknown]
  - Cognitive disorder [Unknown]
  - Confusional state [Recovered/Resolved]
  - Stress [Recovered/Resolved]
  - Malaise [Unknown]
  - Pyrexia [Unknown]
  - Incorrect dose administered [Unknown]
  - Immunodeficiency [Unknown]
  - Dehydration [Recovered/Resolved]
  - Pneumonia [Unknown]
  - Red blood cell count increased [Unknown]
  - Splenomegaly [Unknown]
  - Asthenia [Unknown]

NARRATIVE: CASE EVENT DATE: 20211227
